FAERS Safety Report 20523339 (Version 1)
Quarter: 2022Q1

REPORT INFORMATION
  Report Type: Spontaneous
  Country: NL (occurrence: NL)
  Receive Date: 20220227
  Receipt Date: 20220227
  Transmission Date: 20220423
  Serious: Yes (Life-Threatening, Hospitalization, Other)
  Sender: FDA-Public Use
  Company Number: NL-LRB-00791133

PATIENT
  Sex: Female
  Weight: 97 kg

DRUGS (7)
  1. HYDROCHLOROTHIAZIDE [Suspect]
     Active Substance: HYDROCHLOROTHIAZIDE
     Indication: Oedema peripheral
     Dosage: 12.5 MILLIGRAM, 1 HOUR
     Route: 065
     Dates: start: 20220201, end: 20220206
  2. NITROGLYCERIN [Concomitant]
     Active Substance: NITROGLYCERIN
     Indication: Product used for unknown indication
     Dosage: 0.4 MILLIGRAM, SPRAY ZN AT POB
     Route: 065
  3. OMEPRAZOLE [Concomitant]
     Active Substance: OMEPRAZOLE
     Indication: Product used for unknown indication
     Dosage: 40 MILLIGRAM
     Route: 065
  4. LEVOTHYROXINE [Concomitant]
     Active Substance: LEVOTHYROXINE
     Indication: Product used for unknown indication
     Dosage: 125 MICROGRAM
     Route: 065
  5. SOTALOL [Concomitant]
     Active Substance: SOTALOL
     Indication: Product used for unknown indication
     Dosage: 40 MILLIGRAM
     Route: 065
  6. IRBESARTAN [Concomitant]
     Active Substance: IRBESARTAN
     Indication: Product used for unknown indication
     Dosage: 300 MILLIGRAM
     Route: 065
  7. APIXABAN [Concomitant]
     Active Substance: APIXABAN
     Indication: Product used for unknown indication
     Dosage: 5 MILLIGRAM, TWO TIMES A DAY, 2D5MG
     Route: 065

REACTIONS (2)
  - Hyponatraemia [Recovering/Resolving]
  - Depressed level of consciousness [Recovering/Resolving]
